FAERS Safety Report 23706397 (Version 2)
Quarter: 2024Q2

REPORT INFORMATION
  Report Type: Spontaneous
  Country: US (occurrence: US)
  Receive Date: 20240404
  Receipt Date: 20240419
  Transmission Date: 20240715
  Serious: Yes (Other)
  Sender: FDA-Public Use
  Company Number: US-RADIUS HEALTH, INC.-2024US001466

PATIENT
  Age: 80 Year
  Sex: Male

DRUGS (2)
  1. TYMLOS [Suspect]
     Active Substance: ABALOPARATIDE
     Indication: Osteoporosis
     Dosage: 80 MICROGRAM, QD
     Route: 058
     Dates: start: 20240301, end: 20240325
  2. CALCIUM [Suspect]
     Active Substance: CALCIUM
     Indication: Product used for unknown indication
     Dosage: UNK
     Dates: end: 20240326

REACTIONS (4)
  - Condition aggravated [Recovering/Resolving]
  - Hallucination [Recovering/Resolving]
  - Hangover [Unknown]
  - Balance disorder [Unknown]

NARRATIVE: CASE EVENT DATE: 20240302
